FAERS Safety Report 22588825 (Version 1)
Quarter: 2023Q2

REPORT INFORMATION
  Report Type: Spontaneous
  Country: US (occurrence: None)
  Receive Date: 20230609
  Receipt Date: 20230609
  Transmission Date: 20230721
  Serious: Yes (Life-Threatening)
  Sender: FDA-Public Use
  Company Number: None

PATIENT
  Age: 51 Year
  Sex: Male
  Weight: 106 kg

DRUGS (11)
  1. TERLIPRESSIN [Suspect]
     Active Substance: TERLIPRESSIN
     Dosage: FREQUENCY : 4 TIMES A DAY;?
     Route: 040
     Dates: start: 20230607, end: 20230608
  2. PHYTONADIONE [Concomitant]
     Active Substance: PHYTONADIONE
     Dates: start: 20230606, end: 20230608
  3. PANTOPRAZOLE [Concomitant]
     Active Substance: PANTOPRAZOLE
     Dates: start: 20230603
  4. OCTREOTIDE [Concomitant]
     Active Substance: OCTREOTIDE
     Dates: start: 20230606
  5. MIDODRINE [Concomitant]
     Active Substance: MIDODRINE
     Dates: start: 20230605, end: 20230607
  6. HYDROXYZINE [Concomitant]
     Active Substance: HYDROXYZINE HYDROCHLORIDE
     Dates: start: 20230604, end: 20230608
  7. OXYCODONE [Concomitant]
     Active Substance: OXYCODONE
     Dates: start: 20230606, end: 20230607
  8. ALBUMIN HUMAN [Concomitant]
     Active Substance: ALBUMIN HUMAN
     Dates: start: 20230605
  9. ALPRAZOLAM [Concomitant]
     Active Substance: ALPRAZOLAM
     Dates: start: 20230604, end: 20230607
  10. TRAZODONE [Concomitant]
     Active Substance: TRAZODONE HYDROCHLORIDE
     Dates: start: 20230603, end: 20230607
  11. THIAMINE [Concomitant]
     Active Substance: THIAMINE
     Dates: start: 20230603, end: 20230607

REACTIONS (1)
  - Respiratory failure [None]

NARRATIVE: CASE EVENT DATE: 20230607
